FAERS Safety Report 8779354 (Version 3)
Quarter: 2014Q1

REPORT INFORMATION
  Report Type: Spontaneous
  Country: US (occurrence: US)
  Receive Date: 20120912
  Receipt Date: 20140107
  Transmission Date: 20141002
  Serious: Yes (Hospitalization)
  Sender: FDA-Public Use
  Company Number: US-BAYER-2012-094593

PATIENT
  Age: 20 Year
  Sex: Female
  Weight: 58.96 kg

DRUGS (2)
  1. YASMIN [Suspect]
     Indication: PREMENSTRUAL SYNDROME
     Dosage: UNK
     Dates: start: 200601
  2. LORTAB [Concomitant]

REACTIONS (9)
  - Cholelithiasis [None]
  - Cholecystitis infective [None]
  - Off label use [None]
  - Anxiety [None]
  - Psychological trauma [None]
  - Pain [None]
  - Injury [None]
  - Emotional distress [None]
  - Cholecystitis acute [None]
